FAERS Safety Report 5224978-1 (Version None)
Quarter: 2007Q1

REPORT INFORMATION
  Report Type: 
  Country: None (occurrence: None)
  Receive Date: 20070131
  Receipt Date: 20070122
  Transmission Date: 20070707
  Serious: Yes (Hospitalization, Other)
  Sender: FDA-Public Use
  Company Number: GB-BRISTOL-MYERS SQUIBB COMPANY-13650999

PATIENT
  Age: 55 Year
  Sex: Female

DRUGS (2)
  1. BENDROFLUMETHIAZIDE [Suspect]
  2. POTASSIUM ACETATE [Concomitant]

REACTIONS (3)
  - ADRENAL ADENOMA [None]
  - ALKALOSIS HYPOKALAEMIC [None]
  - PRIMARY HYPERALDOSTERONISM [None]
